FAERS Safety Report 9867066 (Version 1)
Quarter: 2014Q1

REPORT INFORMATION
  Report Type: Spontaneous
  Country: US (occurrence: None)
  Receive Date: 20140203
  Receipt Date: 20140203
  Transmission Date: 20141002
  Serious: Yes (Other)
  Sender: FDA-Public Use
  Company Number: None

PATIENT
  Age: 52 Year
  Sex: Female
  Weight: 63.05 kg

DRUGS (2)
  1. INSULIN [Suspect]
  2. OMNIPOD PDM [Suspect]

REACTIONS (2)
  - Product quality issue [None]
  - Device failure [None]
